FAERS Safety Report 21369710 (Version 1)
Quarter: 2022Q3

REPORT INFORMATION
  Report Type: Spontaneous
  Country: AU (occurrence: AU)
  Receive Date: 20220923
  Receipt Date: 20220923
  Transmission Date: 20221027
  Serious: Yes (Life-Threatening)
  Sender: FDA-Public Use
  Company Number: AU-drreddys-LIT/AUS/22/0154779

PATIENT
  Age: 42 Year
  Sex: Female

DRUGS (2)
  1. IMATINIB [Suspect]
     Active Substance: IMATINIB
     Indication: Desmoid tumour
  2. IMATINIB [Suspect]
     Active Substance: IMATINIB
     Indication: Acquired gene mutation

REACTIONS (1)
  - Drug ineffective for unapproved indication [Unknown]
